FAERS Safety Report 8063650-X (Version None)
Quarter: 2012Q1

REPORT INFORMATION
  Report Type: 
  Country: None (occurrence: None)
  Receive Date: 20120123
  Receipt Date: 20120113
  Transmission Date: 20120608
  Serious: Yes (Hospitalization)
  Sender: FDA-Public Use
  Company Number: JP-EISAI INC-E7389-01946-CLI-JP

PATIENT
  Sex: Female
  Weight: 68 kg

DRUGS (6)
  1. HALAVEN [Suspect]
     Indication: METASTASES TO LIVER
  2. SEROTONE [Concomitant]
     Indication: PROPHYLAXIS
  3. LEVOFLOXACIN [Concomitant]
     Indication: PROPHYLAXIS
  4. HALAVEN [Suspect]
     Indication: BREAST CANCER RECURRENT
     Route: 041
     Dates: start: 20110726, end: 20110823
  5. DECADRON [Concomitant]
     Indication: PROPHYLAXIS
  6. LENDORMIN [Concomitant]
     Indication: PROPHYLAXIS

REACTIONS (1)
  - GASTROENTERITIS BACTERIAL [None]
